FAERS Safety Report 9989835 (Version 1)
Quarter: 2014Q1

REPORT INFORMATION
  Report Type: Report from Study
  Country: US (occurrence: US)
  Receive Date: 20140310
  Receipt Date: 20140310
  Transmission Date: 20141002
  Serious: No
  Sender: FDA-Public Use
  Company Number: US-ABBVIE-13P-163-1131295-00

PATIENT
  Age: 62 Year
  Sex: Female

DRUGS (8)
  1. HUMIRA [Suspect]
     Indication: CROHN^S DISEASE
     Dosage: LOADING DOSE
     Dates: start: 20130713
  2. HUMIRA [Suspect]
     Dosage: LOADING DOSE
     Dates: start: 20130728
  3. HUMIRA [Suspect]
  4. 6MP [Concomitant]
     Indication: PRODUCT USED FOR UNKNOWN INDICATION
  5. TOPROLOL [Concomitant]
     Indication: HEART RATE IRREGULAR
  6. LOVASTATIN [Concomitant]
     Indication: BLOOD CHOLESTEROL
  7. PREDNISONE [Concomitant]
     Indication: PRODUCT USED FOR UNKNOWN INDICATION
     Dosage: WEANING OFF THIS SUNDAY 11 AUG 2013
  8. PREDNISONE [Concomitant]

REACTIONS (5)
  - Malaise [Recovered/Resolved]
  - Injection site pain [Recovered/Resolved]
  - Injection site pain [Recovered/Resolved]
  - Rash pruritic [Recovering/Resolving]
  - Injection site pain [Recovered/Resolved]
